FAERS Safety Report 20080153 (Version 3)
Quarter: 2022Q1

REPORT INFORMATION
  Report Type: Spontaneous
  Country: CA (occurrence: None)
  Receive Date: 20211117
  Receipt Date: 20220316
  Transmission Date: 20220423
  Serious: Yes (Other)
  Sender: FDA-Public Use
  Company Number: CA-ROCHE-2952244

PATIENT
  Age: 54 Year
  Sex: Female
  Weight: 61 kg

DRUGS (10)
  1. PERJETA [Suspect]
     Active Substance: PERTUZUMAB
     Indication: Triple positive breast cancer
     Route: 042
  2. PERJETA [Suspect]
     Active Substance: PERTUZUMAB
     Route: 042
  3. TRASTUZUMAB [Suspect]
     Active Substance: TRASTUZUMAB
     Indication: Triple positive breast cancer
     Route: 065
  4. ATIVAN [Concomitant]
     Active Substance: LORAZEPAM
     Indication: Insomnia
  5. ATORVASTATIN CALCIUM [Concomitant]
     Active Substance: ATORVASTATIN CALCIUM
     Indication: Triple positive breast cancer
     Route: 065
  6. CARBOPLATIN [Concomitant]
     Active Substance: CARBOPLATIN
     Indication: Triple positive breast cancer
     Route: 042
  7. DOCETAXEL [Concomitant]
     Active Substance: DOCETAXEL
     Indication: Triple positive breast cancer
     Route: 065
  8. ESOMEPRAZOLE [Concomitant]
     Active Substance: ESOMEPRAZOLE
  9. PEGFILGRASTIM [Concomitant]
     Active Substance: PEGFILGRASTIM
  10. RANITIDINE [Concomitant]
     Active Substance: RANITIDINE

REACTIONS (26)
  - Blood creatinine increased [Recovered/Resolved]
  - Blood pressure systolic increased [Recovered/Resolved]
  - Glomerular filtration rate decreased [Recovered/Resolved]
  - Haemoglobin decreased [Recovered/Resolved]
  - Lymphocyte count decreased [Recovered/Resolved]
  - Neutrophil count increased [Recovered/Resolved]
  - Off label use [Unknown]
  - Rash [Recovered/Resolved]
  - Red blood cell count decreased [Recovered/Resolved]
  - Red cell distribution width increased [Recovered/Resolved]
  - Uterine haemorrhage [Recovered/Resolved]
  - White blood cell count increased [Recovered/Resolved]
  - Anisocytosis [Recovered/Resolved]
  - Blood chloride decreased [Recovered/Resolved]
  - Blood magnesium decreased [Recovered/Resolved]
  - Blood potassium decreased [Recovered/Resolved]
  - Diarrhoea [Recovered/Resolved]
  - Epistaxis [Recovered/Resolved]
  - Gastrointestinal disorder [Recovered/Resolved]
  - Haematocrit decreased [Recovered/Resolved]
  - Haemoglobin increased [Recovered/Resolved]
  - Mean cell haemoglobin increased [Recovered/Resolved]
  - Monocyte count increased [Recovered/Resolved]
  - Neutrophil count increased [Recovered/Resolved]
  - Platelet count decreased [Recovered/Resolved]
  - White blood cell count decreased [Recovered/Resolved]
